FAERS Safety Report 8236076-3 (Version None)
Quarter: 2012Q1

REPORT INFORMATION
  Report Type: 
  Country: None (occurrence: None)
  Receive Date: 20120327
  Receipt Date: 20120319
  Transmission Date: 20120608
  Serious: Yes (Hospitalization, Other)
  Sender: FDA-Public Use
  Company Number: BR-AMGEN-BRASP2011007878

PATIENT
  Age: 49 Year
  Sex: Female
  Weight: 70 kg

DRUGS (11)
  1. METHOTREXATE [Concomitant]
     Dosage: UNK
  2. TRAZODONE HYDROCHLORIDE [Concomitant]
     Dosage: UNK
  3. LEVOTHYROXINE SODIUM [Concomitant]
     Dosage: UNK
  4. METHOTREXATE [Concomitant]
     Dosage: UNK
  5. DIAZEPAM [Concomitant]
     Dosage: UNK
  6. ENBREL [Suspect]
     Dosage: 50 MG, ONCE WEEKLY
     Route: 058
     Dates: start: 20100118, end: 20110101
  7. LEVOTHYROXINE SODIUM [Concomitant]
     Indication: HYPOTHYROIDISM
     Dosage: 50 MG, UNK
     Dates: start: 20010101
  8. ENBREL [Suspect]
     Indication: PSORIATIC ARTHROPATHY
     Dosage: 25 MG, 2X/WEEK
     Route: 058
     Dates: start: 20100101
  9. LEVOTHYROXINE SODIUM [Concomitant]
     Dosage: UNK
  10. DIAZEPAM [Concomitant]
     Dosage: UNK
  11. VENLAFAXINE HCL [Concomitant]
     Dosage: UNK

REACTIONS (8)
  - CONSTIPATION [None]
  - PAIN [None]
  - BLOOD PRESSURE FLUCTUATION [None]
  - DEPRESSION [None]
  - FEELING ABNORMAL [None]
  - NASOPHARYNGITIS [None]
  - PNEUMONIA [None]
  - ABDOMINAL PAIN [None]
